FAERS Safety Report 15835400 (Version 1)
Quarter: 2019Q1

REPORT INFORMATION
  Report Type: Spontaneous
  Country: US (occurrence: US)
  Receive Date: 20190117
  Receipt Date: 20190117
  Transmission Date: 20190417
  Serious: No
  Sender: FDA-Public Use
  Company Number: US-TEVA-2018-US-990818

PATIENT
  Sex: Male

DRUGS (1)
  1. CLOTRIMAZOLE. [Suspect]
     Active Substance: CLOTRIMAZOLE
     Indication: HAEMORRHOIDS
     Route: 065

REACTIONS (2)
  - Product use in unapproved indication [Unknown]
  - Product prescribing error [Unknown]
